FAERS Safety Report 8604622-3 (Version None)
Quarter: 2012Q3

REPORT INFORMATION
  Report Type: 
  Country: None (occurrence: None)
  Receive Date: 20120820
  Receipt Date: 20120815
  Transmission Date: 20120928
  Serious: Yes (Other)
  Sender: FDA-Public Use
  Company Number: PHEH2012US016044

PATIENT
  Sex: Female

DRUGS (12)
  1. RECLAST [Suspect]
     Route: 042
  2. RECLAST [Suspect]
     Route: 042
  3. RECLAST [Suspect]
     Route: 042
     Dates: start: 20120514
  4. PREDNISONE TAB [Concomitant]
  5. LOSARTAN POTASSIUM [Concomitant]
  6. TACROLIMUS [Concomitant]
  7. RECLAST [Suspect]
     Route: 042
  8. OMEPRAZOLE [Concomitant]
  9. ASPIRIN [Concomitant]
     Dosage: 81 MG, UNK
  10. CELLCEPT [Concomitant]
  11. DIGOXIN [Concomitant]
  12. LEVOTHYROXINE SODIUM [Concomitant]

REACTIONS (1)
  - TOOTH FRACTURE [None]
